FAERS Safety Report 6843426-9 (Version None)
Quarter: 2010Q3

REPORT INFORMATION
  Report Type: 
  Country: None (occurrence: None)
  Receive Date: 20100712
  Receipt Date: 20100706
  Transmission Date: 20110219
  Serious: Yes (Death)
  Sender: FDA-Public Use
  Company Number: WAES 1007PHL00002

PATIENT
  Age: 48 Year
  Sex: Male

DRUGS (6)
  1. ZETIA [Suspect]
     Dosage: 10 MG/DAILY PO
     Route: 048
     Dates: start: 20070810
  2. HUMALOG [Concomitant]
  3. ASPIRIN [Concomitant]
  4. CITICOLINE [Concomitant]
  5. CLOPIDOGREL BISULFATE [Concomitant]
  6. SIMVASTATIN [Concomitant]

REACTIONS (1)
  - HAEMORRHAGIC CEREBRAL INFARCTION [None]
